FAERS Safety Report 5844098-2 (Version None)
Quarter: 2008Q3

REPORT INFORMATION
  Report Type: 
  Country: None (occurrence: None)
  Receive Date: 20080813
  Receipt Date: 20080805
  Transmission Date: 20090109
  Serious: Yes (Hospitalization)
  Sender: FDA-Public Use
  Company Number: US-PFIZER INC-2008060826

PATIENT
  Sex: Male
  Weight: 86 kg

DRUGS (9)
  1. SU-011,248 [Suspect]
     Indication: RENAL CELL CARCINOMA
     Route: 048
     Dates: start: 20080530, end: 20080617
  2. ERLOTINIB [Suspect]
     Indication: RENAL CELL CARCINOMA
     Route: 048
     Dates: start: 20080530, end: 20080617
  3. ASPIRIN [Concomitant]
     Route: 048
  4. LIPITOR [Concomitant]
     Route: 048
  5. LASIX [Concomitant]
     Dosage: TEXT:0.4MG/HR-FREQ:TD
  6. POTASSIUM CHLORIDE [Concomitant]
  7. PLAVIX [Concomitant]
     Route: 048
  8. TOPROL-XL [Concomitant]
     Route: 048
  9. FOLIC ACID [Concomitant]
     Route: 048

REACTIONS (5)
  - NAUSEA [None]
  - PNEUMONIA [None]
  - PYREXIA [None]
  - TACHYCARDIA [None]
  - VOMITING [None]
